FAERS Safety Report 7544218-8 (Version None)
Quarter: 2011Q2

REPORT INFORMATION
  Report Type: 
  Country: None (occurrence: None)
  Receive Date: 20110613
  Receipt Date: 20060927
  Transmission Date: 20111010
  Serious: Yes (Other)
  Sender: FDA-Public Use
  Company Number: PHHO2006CL16276

PATIENT
  Sex: Female

DRUGS (1)
  1. VALSARTAN  AND HYDROCHLOROTHIAZIDE [Suspect]
     Dosage: 92.5 MG, QD
     Route: 048
     Dates: start: 20060801

REACTIONS (1)
  - DEMENTIA ALZHEIMER'S TYPE [None]
